FAERS Safety Report 4429135-4 (Version None)
Quarter: 2004Q3

REPORT INFORMATION
  Report Type: 
  Country: None (occurrence: None)
  Receive Date: 20040726
  Receipt Date: 20040310
  Transmission Date: 20050211
  Serious: No
  Sender: FDA-Public Use
  Company Number: USA040361589

PATIENT
  Age: 53 Year
  Sex: Female

DRUGS (4)
  1. FORTEO [Suspect]
     Indication: OSTEOPOROSIS
     Dates: start: 20040201
  2. CALCIUM [Concomitant]
  3. MULTI-VITAMIN [Concomitant]
  4. FOSAMAX [Concomitant]

REACTIONS (3)
  - DIZZINESS [None]
  - MOTION SICKNESS [None]
  - SOMNOLENCE [None]
